FAERS Safety Report 14363328 (Version 1)
Quarter: 2018Q1

REPORT INFORMATION
  Report Type: Spontaneous
  Country: US (occurrence: US)
  Receive Date: 20180105
  Receipt Date: 20180105
  Transmission Date: 20180509
  Serious: No
  Sender: FDA-Public Use
  Company Number: None

PATIENT
  Sex: Female

DRUGS (12)
  1. ENALAPRIL [Concomitant]
     Active Substance: ENALAPRIL
  2. RESTASIS [Concomitant]
     Active Substance: CYCLOSPORINE
  3. CALCIUM CARB [Concomitant]
     Active Substance: CALCIUM CARBONATE
  4. PRADAXA [Concomitant]
     Active Substance: DABIGATRAN ETEXILATE MESYLATE
  5. ZEPATIER [Suspect]
     Active Substance: ELBASVIR\GRAZOPREVIR
     Indication: HEPATITIS C
     Dosage: 50-100MG DAILY ORAL
     Route: 048
     Dates: start: 20171108
  6. QVAR [Concomitant]
     Active Substance: BECLOMETHASONE DIPROPIONATE
  7. MULTAQ [Concomitant]
     Active Substance: DRONEDARONE
  8. OXYBUTYNIN CHLORIDE. [Concomitant]
     Active Substance: OXYBUTYNIN CHLORIDE
  9. NIFEDIPINE. [Concomitant]
     Active Substance: NIFEDIPINE
  10. PROAIR HFA [Concomitant]
     Active Substance: ALBUTEROL SULFATE
  11. FLUTICASONE. [Concomitant]
     Active Substance: FLUTICASONE
  12. CLARITIN [Concomitant]
     Active Substance: LORATADINE

REACTIONS (2)
  - Cerebral haemorrhage [None]
  - Pneumonia [None]
